FAERS Safety Report 22297707 (Version 1)
Quarter: 2023Q2

REPORT INFORMATION
  Report Type: Spontaneous
  Country: GB (occurrence: GB)
  Receive Date: 20230509
  Receipt Date: 20230509
  Transmission Date: 20230721
  Serious: Yes (Other)
  Sender: FDA-Public Use
  Company Number: GB-LEO Pharma-351459

PATIENT
  Age: 52 Year
  Sex: Female
  Weight: 79 kg

DRUGS (9)
  1. OXALIPLATIN [Suspect]
     Active Substance: OXALIPLATIN
     Indication: Colorectal cancer
     Dosage: 150 MILLIGRAM, CYCLICAL
     Route: 050
     Dates: start: 20230214, end: 20230314
  2. LEUCOVORIN CALCIUM [Suspect]
     Active Substance: LEUCOVORIN CALCIUM
     Indication: Colorectal cancer
     Dosage: 730 MILLIGRAM, CYCLICAL,(730 MG, EVERY 2 WEEKS), IV DRIP;
     Route: 065
     Dates: start: 20230214
  3. CETUXIMAB [Suspect]
     Active Substance: CETUXIMAB
     Indication: Colorectal cancer
     Dosage: 900 MILLIGRAM, CYCLICAL,(900 MG, EVERY 2 WEEKS);
     Route: 065
     Dates: start: 20230214
  4. ENCORAFENIB [Suspect]
     Active Substance: ENCORAFENIB
     Indication: Colorectal cancer
     Dosage: 300 MILLIGRAM, CYCLICAL,(300 MG, EVERY 2 WEEKS);
     Route: 065
     Dates: start: 20230214, end: 20230405
  5. FLUOROURACIL [Suspect]
     Active Substance: FLUOROURACIL
     Indication: Colorectal cancer
     Dosage: 750 MG CYCLIC (750 MG, EVERY 2 WEEKS),;
     Route: 065
     Dates: start: 20230214
  6. FLUOROURACIL [Suspect]
     Active Substance: FLUOROURACIL
     Dosage: 4450 MG CYCLIC (4450 MG, EVERY 2 WEEKS);
     Dates: start: 20230214
  7. FLUOROURACIL [Suspect]
     Active Substance: FLUOROURACIL
     Dosage: 750 MG CYCLIC (750 MG, EVERY 2 WEEKS),;
     Dates: start: 20230214
  8. FLUOROURACIL [Suspect]
     Active Substance: FLUOROURACIL
     Dosage: 4450 MG CYCLIC (4450 MG, EVERY 2 WEEKS);
     Route: 065
     Dates: start: 20230214
  9. INNOHEP [Suspect]
     Active Substance: TINZAPARIN SODIUM
     Indication: Thrombosis
     Dosage: 14000 INTERNATIONAL UNIT, 1X/DAY (14000 IU, ONCE DAILY)
     Route: 065
     Dates: start: 20230328

REACTIONS (1)
  - Ocular retrobulbar haemorrhage [Not Recovered/Not Resolved]

NARRATIVE: CASE EVENT DATE: 20230404
